FAERS Safety Report 22119499 (Version 1)
Quarter: 2023Q1

REPORT INFORMATION
  Report Type: Report from Study
  Country: US (occurrence: US)
  Receive Date: 20230321
  Receipt Date: 20230321
  Transmission Date: 20230417
  Serious: Yes (Hospitalization)
  Sender: FDA-Public Use
  Company Number: US-002147023-NVSC2023US059639

PATIENT
  Sex: Female
  Weight: 92.971 kg

DRUGS (1)
  1. KESIMPTA [Suspect]
     Active Substance: OFATUMUMAB
     Indication: Multiple sclerosis
     Dosage: 20 MG/KG, QMO (FOR ABOUT 1 AND 1/2 YEARS)
     Route: 058

REACTIONS (2)
  - COVID-19 pneumonia [Unknown]
  - Blood potassium decreased [Unknown]
